FAERS Safety Report 24690754 (Version 2)
Quarter: 2025Q2

REPORT INFORMATION
  Report Type: Spontaneous
  Country: US (occurrence: US)
  Receive Date: 20241203
  Receipt Date: 20250604
  Transmission Date: 20250717
  Serious: No
  Sender: NOVEN
  Company Number: US-NOVEN PHARMACEUTICALS, INC.-2023-NOV-US001330

PATIENT
  Sex: Female

DRUGS (2)
  1. MINIVELLE [Suspect]
     Active Substance: ESTRADIOL
     Indication: Hysterectomy
     Route: 062
  2. MINIVELLE [Suspect]
     Active Substance: ESTRADIOL
     Indication: Artificial menopause

REACTIONS (1)
  - Hot flush [Not Recovered/Not Resolved]
